FAERS Safety Report 7772611-7 (Version None)
Quarter: 2011Q3

REPORT INFORMATION
  Report Type: 
  Country: None (occurrence: None)
  Receive Date: 20110922
  Receipt Date: 20110218
  Transmission Date: 20111222
  Serious: No
  Sender: FDA-Public Use
  Company Number: US-ASTRAZENECA-2011SE09556

PATIENT
  Age: 59 Year
  Sex: Female
  Weight: 103 kg

DRUGS (10)
  1. VIT C [Concomitant]
  2. TRAZODONE HCL [Concomitant]
     Indication: SLEEP DISORDER
  3. SEROQUEL XR [Suspect]
     Indication: DEPRESSION
     Route: 048
     Dates: start: 20101221, end: 20110101
  4. LEVOTHROID [Concomitant]
     Indication: THYROID DISORDER
  5. SEROQUEL XR [Suspect]
     Route: 048
  6. ASPIRIN [Concomitant]
     Indication: CARDIAC DISORDER
  7. HYDROCHLOROTHIAZIDE [Concomitant]
     Indication: HYPERTENSION
  8. TOPROL-XL [Concomitant]
     Indication: HYPERTENSION
  9. SYMBALTA [Concomitant]
     Indication: DEPRESSION
  10. NAPROXIN [Concomitant]
     Indication: ARTHRITIS

REACTIONS (1)
  - HANGOVER [None]
